FAERS Safety Report 9116173 (Version 1)
Quarter: 2013Q1

REPORT INFORMATION
  Report Type: Spontaneous
  Country: GB (occurrence: GB)
  Receive Date: 20130225
  Receipt Date: 20130225
  Transmission Date: 20140127
  Serious: Yes (Life-Threatening, Hospitalization, Other)
  Sender: FDA-Public Use
  Company Number: GB-B.I. PHARMACEUTICALS,INC./RIDGEFIELD-2013-UK-00235UK

PATIENT
  Age: 67 Year
  Sex: Female
  Weight: 75 kg

DRUGS (3)
  1. SPIRIVA [Suspect]
     Indication: CHRONIC OBSTRUCTIVE PULMONARY DISEASE
     Dosage: 1DF
     Route: 055
     Dates: start: 20110816, end: 20130124
  2. DOXYCYCLINE [Suspect]
     Dosage: 1DF
     Dates: start: 20130122
  3. IBUPROFEN [Suspect]
     Indication: SINUSITIS
     Dosage: 10DF

REACTIONS (4)
  - Headache [Not Recovered/Not Resolved]
  - International normalised ratio increased [Not Recovered/Not Resolved]
  - Sinusitis [Not Recovered/Not Resolved]
  - Subdural haematoma [Not Recovered/Not Resolved]
